FAERS Safety Report 20667867 (Version 3)
Quarter: 2022Q2

REPORT INFORMATION
  Report Type: Spontaneous
  Country: JP (occurrence: JP)
  Receive Date: 20220404
  Receipt Date: 20220530
  Transmission Date: 20220721
  Serious: Yes (Hospitalization)
  Sender: FDA-Public Use
  Company Number: JP-BRISTOL-MYERS SQUIBB COMPANY-2022-011786

PATIENT
  Sex: Female

DRUGS (45)
  1. YERVOY [Suspect]
     Active Substance: IPILIMUMAB
     Indication: Non-small cell lung cancer recurrent
     Dosage: UNK UNK, SINGLE
     Route: 041
     Dates: start: 20211111, end: 20211111
  2. YERVOY [Suspect]
     Active Substance: IPILIMUMAB
     Dosage: UNK UNK, SINGLE
     Route: 041
     Dates: start: 202111, end: 202111
  3. OPDIVO [Suspect]
     Active Substance: NIVOLUMAB
     Indication: Non-small cell lung cancer recurrent
     Dosage: UNK UNK, SINGLE
     Route: 041
     Dates: start: 20211111, end: 20211111
  4. OPDIVO [Suspect]
     Active Substance: NIVOLUMAB
     Dosage: UNK UNK, SINGLE
     Route: 041
     Dates: start: 202111, end: 202111
  5. CARBOPLATIN [Suspect]
     Active Substance: CARBOPLATIN
     Indication: Non-small cell lung cancer recurrent
     Dosage: UNK
     Route: 065
     Dates: start: 20211111, end: 20211111
  6. CARBOPLATIN [Suspect]
     Active Substance: CARBOPLATIN
     Dates: start: 20211207, end: 20211207
  7. CARBOPLATIN [Suspect]
     Active Substance: CARBOPLATIN
     Dates: start: 20211228, end: 20211228
  8. CARBOPLATIN [Suspect]
     Active Substance: CARBOPLATIN
     Dates: start: 20220118, end: 20220118
  9. CARBOPLATIN [Suspect]
     Active Substance: CARBOPLATIN
     Dates: start: 20220208, end: 20220208
  10. PACLITAXEL [Suspect]
     Active Substance: PACLITAXEL
     Indication: Non-small cell lung cancer
     Dosage: UNK
     Route: 065
     Dates: start: 20211111, end: 20211111
  11. PACLITAXEL [Suspect]
     Active Substance: PACLITAXEL
     Dates: start: 20211207, end: 20211207
  12. PACLITAXEL [Suspect]
     Active Substance: PACLITAXEL
     Dates: start: 20211228, end: 20211228
  13. PACLITAXEL [Suspect]
     Active Substance: PACLITAXEL
     Dates: start: 20220118, end: 20220118
  14. PACLITAXEL [Suspect]
     Active Substance: PACLITAXEL
     Dates: start: 20220208, end: 20220208
  15. DEXAMETHASONE SODIUM PHOSPHATE [Concomitant]
     Active Substance: DEXAMETHASONE SODIUM PHOSPHATE
     Indication: Product used for unknown indication
     Dates: start: 20211111, end: 20211111
  16. DEXAMETHASONE SODIUM PHOSPHATE [Concomitant]
     Active Substance: DEXAMETHASONE SODIUM PHOSPHATE
     Dates: start: 20211207, end: 20211207
  17. DEXAMETHASONE SODIUM PHOSPHATE [Concomitant]
     Active Substance: DEXAMETHASONE SODIUM PHOSPHATE
     Dates: start: 20211228, end: 20211228
  18. DEXAMETHASONE SODIUM PHOSPHATE [Concomitant]
     Active Substance: DEXAMETHASONE SODIUM PHOSPHATE
     Dates: start: 20220118, end: 20220118
  19. DEXAMETHASONE SODIUM PHOSPHATE [Concomitant]
     Active Substance: DEXAMETHASONE SODIUM PHOSPHATE
     Dates: start: 20220208, end: 20220208
  20. FAMOTIDINE [Concomitant]
     Active Substance: FAMOTIDINE
     Indication: Product used for unknown indication
     Dates: start: 20211111, end: 20211111
  21. FAMOTIDINE [Concomitant]
     Active Substance: FAMOTIDINE
     Dates: start: 20211207, end: 20211207
  22. FAMOTIDINE [Concomitant]
     Active Substance: FAMOTIDINE
     Dates: start: 20211228, end: 20211228
  23. FAMOTIDINE [Concomitant]
     Active Substance: FAMOTIDINE
     Dates: start: 20220118, end: 20220118
  24. FAMOTIDINE [Concomitant]
     Active Substance: FAMOTIDINE
     Dates: start: 20220208, end: 20220208
  25. POLARAMINE [Concomitant]
     Active Substance: DEXCHLORPHENIRAMINE MALEATE
     Indication: Product used for unknown indication
     Dates: start: 20211111, end: 20211111
  26. POLARAMINE [Concomitant]
     Active Substance: DEXCHLORPHENIRAMINE MALEATE
     Dates: start: 20211207, end: 20211207
  27. POLARAMINE [Concomitant]
     Active Substance: DEXCHLORPHENIRAMINE MALEATE
     Dates: start: 20211228, end: 20211228
  28. POLARAMINE [Concomitant]
     Active Substance: DEXCHLORPHENIRAMINE MALEATE
     Dates: start: 20220118, end: 20220118
  29. POLARAMINE [Concomitant]
     Active Substance: DEXCHLORPHENIRAMINE MALEATE
     Dates: start: 20220208, end: 20220208
  30. ALOXI [Concomitant]
     Active Substance: PALONOSETRON HYDROCHLORIDE
     Indication: Product used for unknown indication
     Dates: start: 20211111, end: 20211111
  31. APREPITANT [Concomitant]
     Active Substance: APREPITANT
     Indication: Product used for unknown indication
     Dates: start: 20211111, end: 20211111
  32. APREPITANT [Concomitant]
     Active Substance: APREPITANT
     Dates: start: 20211207, end: 20211207
  33. APREPITANT [Concomitant]
     Active Substance: APREPITANT
     Dates: start: 20211228, end: 20211228
  34. APREPITANT [Concomitant]
     Active Substance: APREPITANT
     Dates: start: 20220118, end: 20220118
  35. APREPITANT [Concomitant]
     Active Substance: APREPITANT
     Dates: start: 20220208, end: 20220208
  36. PALONOSETRON [Concomitant]
     Active Substance: PALONOSETRON
     Indication: Product used for unknown indication
     Dates: start: 20211207, end: 20211207
  37. PALONOSETRON [Concomitant]
     Active Substance: PALONOSETRON
     Dates: start: 20211228, end: 20211228
  38. PALONOSETRON [Concomitant]
     Active Substance: PALONOSETRON
     Dates: start: 20220118, end: 20220118
  39. PALONOSETRON [Concomitant]
     Active Substance: PALONOSETRON
     Dates: start: 20220208, end: 20220208
  40. LEVOTHYROXINE [Concomitant]
     Active Substance: LEVOTHYROXINE
     Indication: Product used for unknown indication
  41. MIROGABALIN BESYLATE [Concomitant]
     Active Substance: MIROGABALIN BESYLATE
     Indication: Product used for unknown indication
     Dates: start: 202111, end: 202111
  42. METHYLCOBALAMIN [Concomitant]
     Active Substance: METHYLCOBALAMIN
     Indication: Product used for unknown indication
     Dates: start: 202111, end: 20220301
  43. HERBALS [Concomitant]
     Active Substance: HERBALS
     Indication: Product used for unknown indication
     Dates: start: 202111, end: 202203
  44. SULFAMETHOXAZOLE\TRIMETHOPRIM [Concomitant]
     Active Substance: SULFAMETHOXAZOLE\TRIMETHOPRIM
     Indication: Product used for unknown indication
     Dates: start: 202202, end: 202202
  45. SULFAMETHOXAZOLE\TRIMETHOPRIM [Concomitant]
     Active Substance: SULFAMETHOXAZOLE\TRIMETHOPRIM
     Dates: start: 20220312

REACTIONS (1)
  - Liver disorder [Recovering/Resolving]

NARRATIVE: CASE EVENT DATE: 20211122
